FAERS Safety Report 24298638 (Version 1)
Quarter: 2024Q3

REPORT INFORMATION
  Report Type: Spontaneous
  Country: US (occurrence: US)
  Receive Date: 20240909
  Receipt Date: 20240909
  Transmission Date: 20241016
  Serious: No
  Sender: TAKEDA
  Company Number: US-TAKEDA-2024TUS089289

PATIENT
  Sex: Male

DRUGS (1)
  1. ENTYVIO [Suspect]
     Active Substance: VEDOLIZUMAB
     Indication: Product used for unknown indication
     Dosage: UNK
     Route: 042

REACTIONS (4)
  - Wheezing [Unknown]
  - Feeling hot [Unknown]
  - Dyspnoea [Unknown]
  - Dizziness [Unknown]
